FAERS Safety Report 8468051 (Version 2)
Quarter: 2012Q4

REPORT INFORMATION
  Report Type: 
  Country: US (occurrence: US)
  Receive Date: 20120320
  Receipt Date: 20121024
  Transmission Date: 20130627
  Serious: Yes (Other)
  Sender: FDA-Public Use
  Company Number: US-US-EMD SERONO, INC.-7118832

PATIENT
  Sex: Female
  Weight: 93 kg

DRUGS (8)
  1. REBIF [Suspect]
     Indication: PRODUCT USED FOR UNKNOWN INDICATION
     Route: 058
     Dates: start: 20070413, end: 201110
  2. REBIF [Suspect]
     Route: 058
     Dates: start: 20111227
  3. OMEPRAZOLE [Concomitant]
     Indication: IRRITABLE BOWEL SYNDROME
  4. SINGULAIR [Concomitant]
     Indication: PRODUCT USED FOR UNKNOWN INDICATION
  5. LORAZEPAM [Concomitant]
     Indication: IDIOPATHIC URTICARIA
  6. RANITIDINE [Concomitant]
     Indication: IDIOPATHIC URTICARIA
  7. ZYZOL [Concomitant]
     Indication: IDIOPATHIC URTICARIA
  8. BIRTH CONTROL [Concomitant]
     Indication: POLYCYSTIC OVARIES

REACTIONS (3)
  - Nephrolithiasis [Recovered/Resolved]
  - Cholelithiasis [Recovered/Resolved]
  - Injection site urticaria [Not Recovered/Not Resolved]
